FAERS Safety Report 25810773 (Version 1)
Quarter: 2025Q3

REPORT INFORMATION
  Report Type: Spontaneous
  Country: US (occurrence: US)
  Receive Date: 20250917
  Receipt Date: 20250917
  Transmission Date: 20251020
  Serious: No
  Sender: ELI LILLY AND COMPANY
  Company Number: US-ELI_LILLY_AND_COMPANY-US202509008705

PATIENT
  Age: 45 Year
  Sex: Female

DRUGS (1)
  1. EMGALITY [Suspect]
     Active Substance: GALCANEZUMAB-GNLM
     Indication: Product used for unknown indication
     Route: 058

REACTIONS (6)
  - Sinusitis [Unknown]
  - Nasopharyngitis [Unknown]
  - Injection site urticaria [Recovered/Resolved]
  - Injection site urticaria [Recovered/Resolved]
  - Injection site pain [Unknown]
  - Drug dose omission by device [Unknown]
